FAERS Safety Report 4932877-5 (Version None)
Quarter: 2006Q1

REPORT INFORMATION
  Report Type: 
  Country: None (occurrence: None)
  Receive Date: 20060306
  Receipt Date: 20060222
  Transmission Date: 20060701
  Serious: Yes (Other)
  Sender: FDA-Public Use
  Company Number: PHMT2006CA00757

PATIENT
  Sex: Female

DRUGS (1)
  1. FEMARA [Suspect]
     Indication: OVULATION INDUCTION
     Dosage: 2.5 MG/D FROM 3RD TO 7TH DAY OF CYCLE
     Route: 048
     Dates: start: 20040301, end: 20040501

REACTIONS (6)
  - CAESAREAN SECTION [None]
  - DRUG EXPOSURE DURING PREGNANCY [None]
  - HYPERTENSION [None]
  - NAUSEA [None]
  - PREMATURE SEPARATION OF PLACENTA [None]
  - UTERINE HYPERTONUS [None]
